FAERS Safety Report 9187768 (Version 1)
Quarter: 2013Q1

REPORT INFORMATION
  Report Type: Spontaneous
  Country: US (occurrence: US)
  Receive Date: 20130325
  Receipt Date: 20130325
  Transmission Date: 20140127
  Serious: No
  Sender: FDA-Public Use
  Company Number: US-MYLANLABS-2012S1007216

PATIENT
  Age: 55 Year
  Sex: Female
  Weight: 45.36 kg

DRUGS (5)
  1. FENTANYL TRANSDERMAL SYSTEM [Suspect]
     Indication: FIBROMYALGIA
     Route: 062
     Dates: start: 20111213, end: 201201
  2. FENTANYL TRANSDERMAL SYSTEM [Suspect]
     Indication: FIBROMYALGIA
     Route: 062
     Dates: start: 201201, end: 201202
  3. FENTANYL TRANSDERMAL SYSTEM [Suspect]
     Indication: FIBROMYALGIA
     Dosage: Q48H
     Route: 062
     Dates: start: 201202
  4. OXYCODONE [Concomitant]
     Indication: PAIN
     Route: 048
  5. LORAZEPAM [Concomitant]
     Indication: INSOMNIA
     Route: 048

REACTIONS (3)
  - Application site scab [Not Recovered/Not Resolved]
  - Application site pain [Not Recovered/Not Resolved]
  - Application site erythema [Not Recovered/Not Resolved]
